FAERS Safety Report 9633034 (Version 1)
Quarter: 2013Q4

REPORT INFORMATION
  Report Type: Spontaneous
  Country: FR (occurrence: FR)
  Receive Date: 20131018
  Receipt Date: 20131018
  Transmission Date: 20140711
  Serious: Yes (Other)
  Sender: FDA-Public Use
  Company Number: FR-BAXTER-2013BAX040771

PATIENT
  Age: 77 Year
  Sex: Male
  Weight: 83 kg

DRUGS (2)
  1. MANNITOL 20 % VIAFLO, SOLUTION POUR PERFUSION [Suspect]
     Indication: CEREBRAL INFARCTION
     Route: 065
  2. FUROSEMIDE [Suspect]
     Indication: CEREBRAL INFARCTION
     Route: 065

REACTIONS (3)
  - Renal failure acute [Recovered/Resolved]
  - Hyperthermia [Recovered/Resolved]
  - Altered state of consciousness [Recovered/Resolved]
